FAERS Safety Report 6901549-X (Version None)
Quarter: 2010Q3

REPORT INFORMATION
  Report Type: 
  Country: None (occurrence: None)
  Receive Date: 20100803
  Receipt Date: 20080208
  Transmission Date: 20110219
  Serious: Yes (Other)
  Sender: FDA-Public Use
  Company Number: US-PFIZER INC-2008014034

PATIENT
  Sex: Female

DRUGS (5)
  1. LYRICA [Suspect]
     Indication: FIBROMYALGIA
  2. CYMBALTA [Concomitant]
  3. TYLENOL [Concomitant]
  4. ULTRAM [Concomitant]
  5. VICODIN [Concomitant]

REACTIONS (2)
  - FLUID RETENTION [None]
  - ILL-DEFINED DISORDER [None]
